FAERS Safety Report 6516555-7 (Version None)
Quarter: 2009Q4

REPORT INFORMATION
  Report Type: 
  Country: None (occurrence: None)
  Receive Date: 20091223
  Receipt Date: 20091218
  Transmission Date: 20100525
  Serious: Yes (Other)
  Sender: FDA-Public Use
  Company Number: JP-ASTRAZENECA-2009SE27559

PATIENT
  Age: 19884 Day
  Sex: Female
  Weight: 51 kg

DRUGS (9)
  1. DIPRIVAN [Suspect]
     Indication: INDUCTION OF ANAESTHESIA
     Route: 042
     Dates: start: 20091118, end: 20091118
  2. FENTANYL CITRATE [Suspect]
     Indication: INDUCTION OF ANAESTHESIA
     Route: 042
     Dates: start: 20091118, end: 20091118
  3. ESLAX [Suspect]
     Indication: INDUCTION OF ANAESTHESIA
     Route: 042
     Dates: start: 20091118, end: 20091118
  4. MYSLEE [Concomitant]
     Route: 048
     Dates: start: 20091117
  5. PURSENNID [Concomitant]
     Route: 048
     Dates: start: 20091117
  6. ATROPINE SULFATE [Concomitant]
     Indication: ANAESTHETIC PREMEDICATION
     Route: 030
     Dates: start: 20091118, end: 20091118
  7. DORMICUM [Concomitant]
     Indication: ANAESTHETIC PREMEDICATION
     Route: 030
     Dates: start: 20091118, end: 20091118
  8. ISOFLURANE [Concomitant]
     Indication: ANAESTHESIA PROCEDURE
     Route: 055
     Dates: start: 20091118, end: 20091118
  9. ULTIVA [Concomitant]
     Indication: MAINTENANCE OF ANAESTHESIA
     Route: 041
     Dates: start: 20091118, end: 20091118

REACTIONS (1)
  - ANAPHYLACTIC SHOCK [None]
